FAERS Safety Report 6702981-X (Version None)
Quarter: 2010Q2

REPORT INFORMATION
  Report Type: 
  Country: None (occurrence: None)
  Receive Date: 20100429
  Receipt Date: 20100429
  Transmission Date: 20101027
  Serious: No
  Sender: FDA-Public Use
  Company Number: None

PATIENT
  Sex: Female

DRUGS (1)
  1. TRILEPTAL [Suspect]
     Indication: CONVULSION
     Dosage: ONE 2X A DAY

REACTIONS (2)
  - CONVULSION [None]
  - PRODUCT SUBSTITUTION ISSUE [None]
